FAERS Safety Report 19494182 (Version 1)
Quarter: 2021Q3

REPORT INFORMATION
  Report Type: Report from Study
  Country: DE (occurrence: DE)
  Receive Date: 20210706
  Receipt Date: 20210706
  Transmission Date: 20211014
  Serious: Yes (Life-Threatening)
  Sender: FDA-Public Use
  Company Number: DE-AMGEN-DEUNI2021100612

PATIENT
  Age: 50 Year
  Sex: Female
  Weight: 63 kg

DRUGS (4)
  1. DARATUMUMAB [Suspect]
     Active Substance: DARATUMUMAB
     Indication: PLASMA CELL MYELOMA
     Dosage: 1000 MILLIGRAM UNK
     Route: 065
     Dates: start: 20210504, end: 20210614
  2. CARFILZOMIB [Suspect]
     Active Substance: CARFILZOMIB
     Indication: PLASMA CELL MYELOMA
     Dosage: 100 MILLIGRAM UNK
     Route: 065
     Dates: start: 20210504
  3. DARATUMUMAB [Suspect]
     Active Substance: DARATUMUMAB
     Dosage: 500 MILLIGRAM UNK
     Route: 065
     Dates: start: 20210505
  4. CARFILZOMIB [Suspect]
     Active Substance: CARFILZOMIB
     Dosage: 30 MILLIGRAM UNK
     Route: 065
     Dates: start: 20210504

REACTIONS (1)
  - Anaemia [Recovering/Resolving]

NARRATIVE: CASE EVENT DATE: 20210505
